FAERS Safety Report 18364434 (Version 1)
Quarter: 2020Q4

REPORT INFORMATION
  Report Type: Spontaneous
  Country: US (occurrence: US)
  Receive Date: 20201008
  Receipt Date: 20201008
  Transmission Date: 20210114
  Serious: No
  Sender: FDA-Public Use
  Company Number: None

PATIENT
  Age: 51 Day
  Sex: Female

DRUGS (1)
  1. BOTOX [Suspect]
     Active Substance: ONABOTULINUMTOXINA
     Route: 030

REACTIONS (3)
  - Skin disorder [None]
  - Feeling abnormal [None]
  - Lipoatrophy [None]

NARRATIVE: CASE EVENT DATE: 20200519
